FAERS Safety Report 8232416-X (Version None)
Quarter: 2012Q1

REPORT INFORMATION
  Report Type: 
  Country: None (occurrence: None)
  Receive Date: 20120323
  Receipt Date: 20120314
  Transmission Date: 20120608
  Serious: Yes (Hospitalization)
  Sender: FDA-Public Use
  Company Number: US-VERTEX PHARMACEUTICALS INC.-AE-2012-003715

PATIENT
  Sex: Male
  Weight: 69.916 kg

DRUGS (3)
  1. RIBAVIRIN [Concomitant]
     Indication: HEPATITIS C
     Dates: start: 20120224
  2. PEGASYS [Concomitant]
     Indication: HEPATITIS C
     Dates: start: 20120224
  3. INCIVEK [Suspect]
     Indication: HEPATITIS C
     Route: 048
     Dates: start: 20120224

REACTIONS (4)
  - ALTERED STATE OF CONSCIOUSNESS [None]
  - INJECTION SITE REACTION [None]
  - PLATELET COUNT DECREASED [None]
  - DIZZINESS [None]
